FAERS Safety Report 7446649-3 (Version None)
Quarter: 2011Q2

REPORT INFORMATION
  Report Type: 
  Country: None (occurrence: None)
  Receive Date: 20110429
  Receipt Date: 20110427
  Transmission Date: 20111010
  Serious: Yes (Death, Hospitalization, Other)
  Sender: FDA-Public Use
  Company Number: IT-BRISTOL-MYERS SQUIBB COMPANY-15442585

PATIENT
  Age: 85 Year
  Sex: Female

DRUGS (13)
  1. ANTRA [Concomitant]
     Dosage: 1 TAB
  2. NITRODERM [Concomitant]
  3. HUMULIN I [Concomitant]
     Dosage: STRENGTH:100 U/ML 15IN  IN THE EVENING
  4. SELECTIN [Concomitant]
  5. CONGESCOR [Concomitant]
     Dosage: FORMULATION:TABS
  6. LASIX [Concomitant]
     Dosage: 1DF:500MG 1/4 TABS AT 8AM AND 25MG AT 1PM ALOS TAKEN 20MG IV
  7. ALDACTONE [Concomitant]
     Dosage: FORMULATION:CAPS
     Route: 048
  8. KLACID [Suspect]
     Indication: PNEUMONITIS
     Dosage: FORMULATION:KLACID 500 MG ORAL TABS 2 UNITS PER DAY
     Route: 048
     Dates: start: 20101206, end: 20101210
  9. ALLOPURINOL [Suspect]
     Indication: HYPERURICAEMIA
     Dosage: FORMULATION:ZYLORIC 300 MG ORAL TABS. 1 DF:1 UNIT
     Route: 048
     Dates: start: 20100101, end: 20101210
  10. HUMULIN R [Concomitant]
     Dosage: STRENGTH:100 U/ML 14IU+18+18
  11. MINITRAN [Concomitant]
     Dosage: MINITRAN TTS TAKEN DURING DAY TIME
  12. COUMADIN [Suspect]
     Indication: PROPHYLAXIS
     Dosage: INTER ON 07DEC2010 1 TAB
     Dates: start: 20070101
  13. ROCEPHIN [Concomitant]
     Indication: PNEUMONITIS
     Route: 042
     Dates: start: 20101206, end: 20101210

REACTIONS (6)
  - BRONCHOPNEUMONIA [None]
  - PLEURAL EFFUSION [None]
  - CARDIAC FAILURE [None]
  - RESPIRATORY FAILURE [None]
  - INTERNATIONAL NORMALISED RATIO INCREASED [None]
  - HYPERURICAEMIA [None]
